FAERS Safety Report 5061748-1 (Version None)
Quarter: 2006Q3

REPORT INFORMATION
  Report Type: 
  Country: None (occurrence: None)
  Receive Date: 20060726
  Receipt Date: 20050620
  Transmission Date: 20061208
  Serious: No
  Sender: FDA-Public Use
  Company Number: US-GLAXOSMITHKLINE-A0563381A

PATIENT
  Age: 75 Year
  Sex: Female

DRUGS (2)
  1. DYAZIDE [Suspect]
     Indication: HYPERTENSION
     Route: 048
  2. QUININE SULFATE [Concomitant]

REACTIONS (2)
  - DIZZINESS [None]
  - HYPOAESTHESIA [None]
